FAERS Safety Report 13830158 (Version 1)
Quarter: 2017Q3

REPORT INFORMATION
  Report Type: Spontaneous
  Country: US (occurrence: US)
  Receive Date: 20170803
  Receipt Date: 20170803
  Transmission Date: 20171127
  Serious: No
  Sender: FDA-Public Use
  Company Number: US-SA-2017SA099628

PATIENT

DRUGS (4)
  1. ALIROCUMAB PREFILLED PEN [Concomitant]
     Active Substance: ALIROCUMAB
  2. ALIROCUMAB PREFILLED PEN [Concomitant]
     Active Substance: ALIROCUMAB
  3. PRALUENT [Suspect]
     Active Substance: ALIROCUMAB
     Route: 058
  4. PRALUENT [Suspect]
     Active Substance: ALIROCUMAB
     Route: 058

REACTIONS (7)
  - Nausea [Unknown]
  - Headache [Unknown]
  - Vision blurred [Unknown]
  - Bedridden [Unknown]
  - Dizziness [Unknown]
  - Cardiac disorder [Unknown]
  - Blood cholesterol increased [Unknown]
